FAERS Safety Report 4731159-4 (Version None)
Quarter: 2005Q3

REPORT INFORMATION
  Report Type: 
  Country: None (occurrence: None)
  Receive Date: 20050802
  Receipt Date: 20050613
  Transmission Date: 20060218
  Serious: Yes (Hospitalization)
  Sender: FDA-Public Use
  Company Number: DE-BOEHRINGER INGELHEIM PHARMACEUTICALS, INC.-2005-DE-02260DE

PATIENT
  Sex: Male

DRUGS (2)
  1. SPIRIVA [Suspect]
     Indication: BRONCHITIS CHRONIC
     Route: 055
  2. SPIRIVA [Suspect]
     Indication: INFECTION

REACTIONS (5)
  - DYSPNOEA [None]
  - DYSPNOEA EXACERBATED [None]
  - LARYNGOSPASM [None]
  - OBSTRUCTIVE AIRWAYS DISORDER [None]
  - VOCAL CORD PARALYSIS [None]
